FAERS Safety Report 10144179 (Version 4)
Quarter: 2014Q2

REPORT INFORMATION
  Report Type: Spontaneous
  Country: US (occurrence: US)
  Receive Date: 20140430
  Receipt Date: 20140602
  Transmission Date: 20141212
  Serious: Yes (Other)
  Sender: FDA-Public Use
  Company Number: US-PFIZER INC-2014116599

PATIENT
  Age: 73 Year
  Sex: Female
  Weight: 89.34 kg

DRUGS (4)
  1. REVATIO [Suspect]
     Indication: PULMONARY HYPERTENSION
     Dosage: 80 MG, 3X/DAY
     Dates: start: 2003
  2. NEXIUM [Concomitant]
     Indication: GASTROOESOPHAGEAL REFLUX DISEASE
     Dosage: 40 MG, UNK
  3. LASIX [Concomitant]
     Dosage: 80 MG, DAILY
  4. ALDACTONE [Concomitant]
     Dosage: 25 MG, UNK

REACTIONS (3)
  - Heart rate decreased [Unknown]
  - Pulmonary hypertension [Unknown]
  - Malaise [Unknown]
